FAERS Safety Report 24360763 (Version 1)
Quarter: 2024Q3

REPORT INFORMATION
  Report Type: Spontaneous
  Country: CO (occurrence: CO)
  Receive Date: 20240925
  Receipt Date: 20240925
  Transmission Date: 20241016
  Serious: Yes (Other)
  Sender: SANDOZ
  Company Number: CO-SANDOZ-SDZ2024CO081643

PATIENT
  Sex: Female

DRUGS (4)
  1. FULVESTRANT [Suspect]
     Active Substance: FULVESTRANT
     Indication: Product used for unknown indication
     Dosage: 500 MG, QD
     Route: 030
     Dates: start: 202401
  2. LOSARTAN [Suspect]
     Active Substance: LOSARTAN\LOSARTAN POTASSIUM
     Indication: Hypertension
     Dosage: 50 MG, Q24H
     Route: 048
     Dates: start: 2023
  3. PREGABALIN [Suspect]
     Active Substance: PREGABALIN
     Indication: Pain management
     Dosage: 300 MG, Q8H
     Route: 048
     Dates: start: 2014
  4. KISQALI [Concomitant]
     Active Substance: RIBOCICLIB
     Indication: HER2 negative breast cancer
     Dosage: 600 MG, QD
     Route: 048
     Dates: start: 20220801

REACTIONS (5)
  - Renal failure [Not Recovered/Not Resolved]
  - Glucose tolerance impaired [Not Recovered/Not Resolved]
  - Fall [Not Recovered/Not Resolved]
  - Pain [Not Recovered/Not Resolved]
  - Hyporeflexia [Not Recovered/Not Resolved]
